FAERS Safety Report 7135070-3 (Version None)
Quarter: 2010Q4

REPORT INFORMATION
  Report Type: 
  Country: None (occurrence: None)
  Receive Date: 20101203
  Receipt Date: 20100706
  Transmission Date: 20110411
  Serious: No
  Sender: FDA-Public Use
  Company Number: US-BRISTOL-MYERS SQUIBB COMPANY-15181407

PATIENT

DRUGS (1)
  1. VIDEX [Suspect]
     Indication: HIV INFECTION

REACTIONS (1)
  - EYELID PTOSIS [None]
